FAERS Safety Report 6197418-6 (Version None)
Quarter: 2009Q2

REPORT INFORMATION
  Report Type: 
  Country: None (occurrence: None)
  Receive Date: 20090518
  Receipt Date: 20090512
  Transmission Date: 20091009
  Serious: Yes (Other)
  Sender: FDA-Public Use
  Company Number: SPV1-2009-00938

PATIENT
  Age: 9 Year
  Sex: Male
  Weight: 33.1 kg

DRUGS (1)
  1. VYVANSE [Suspect]
     Indication: ATTENTION DEFICIT/HYPERACTIVITY DISORDER
     Dosage: 40 MG, 1X/DAY QD; ORAL
     Route: 048
     Dates: start: 20090422, end: 20090501

REACTIONS (4)
  - EMOTIONAL DISTRESS [None]
  - SUICIDAL IDEATION [None]
  - TACHYPHRENIA [None]
  - THINKING ABNORMAL [None]
